FAERS Safety Report 6622284-1 (Version None)
Quarter: 2010Q1

REPORT INFORMATION
  Report Type: 
  Country: None (occurrence: None)
  Receive Date: 20100310
  Receipt Date: 20100223
  Transmission Date: 20100710
  Serious: Yes (Other)
  Sender: FDA-Public Use
  Company Number: US-ELI_LILLY_AND_COMPANY-US201001000664

PATIENT
  Sex: Female
  Weight: 56.236 kg

DRUGS (7)
  1. FORTEO [Suspect]
     Indication: OSTEOPOROSIS
  2. HYDROCODONE [Concomitant]
  3. VENLAFAXINE [Concomitant]
     Dosage: 75 MG, UNK
  4. TRAZODONE HCL [Concomitant]
     Dosage: 150 MG, UNK
  5. ALPRAZOLAM [Concomitant]
     Dosage: 0.5 MG, UNK
  6. DICYCLOMINE [Concomitant]
     Dosage: 20 MG, UNK
  7. OXYCODONE HCL AND ACETAMINOPHEN [Concomitant]

REACTIONS (3)
  - ANXIETY [None]
  - CHRONIC LYMPHOCYTIC LEUKAEMIA STAGE 4 [None]
  - SQUAMOUS CELL CARCINOMA OF SKIN [None]
